FAERS Safety Report 23128415 (Version 1)
Quarter: 2023Q4

REPORT INFORMATION
  Report Type: Report from Study
  Country: JP (occurrence: JP)
  Receive Date: 20231031
  Receipt Date: 20231031
  Transmission Date: 20240110
  Serious: Yes (Other)
  Sender: FDA-Public Use
  Company Number: JP-TAKEDA-2023TJP013714

PATIENT
  Age: 50 Year
  Sex: Male
  Weight: 75 kg

DRUGS (6)
  1. PANITUMUMAB [Suspect]
     Active Substance: PANITUMUMAB
     Indication: Adenocarcinoma of colon
     Dosage: 480 MILLIGRAM, Q2WEEKS
     Route: 065
     Dates: start: 20200626, end: 20200626
  2. PANITUMUMAB [Suspect]
     Active Substance: PANITUMUMAB
     Dosage: 450 MILLIGRAM, Q2WK
     Route: 065
     Dates: start: 20200710, end: 20201009
  3. IRINOTECAN [Suspect]
     Active Substance: IRINOTECAN
     Indication: Adenocarcinoma of colon
     Dosage: 280 MILLIGRAM, Q2WEEKS
     Route: 065
     Dates: start: 20200626, end: 20200626
  4. IRINOTECAN [Suspect]
     Active Substance: IRINOTECAN
     Dosage: 270 MILLIGRAM, Q2WEEKS
     Route: 065
     Dates: start: 20200710, end: 20200710
  5. IRINOTECAN [Suspect]
     Active Substance: IRINOTECAN
     Dosage: 280 MILLIGRAM, Q2WEEKS
     Route: 065
     Dates: start: 20200727, end: 20201009
  6. GRANULOCYTE COLONY-STIMULATING FACTOR NOS [Concomitant]
     Active Substance: GRANULOCYTE COLONY-STIMULATING FACTOR NOS
     Indication: Product used for unknown indication
     Dosage: UNK
     Route: 065
     Dates: start: 20201025, end: 20201025

REACTIONS (11)
  - Neutrophil count decreased [Unknown]
  - Peripheral sensory neuropathy [Unknown]
  - Aspartate aminotransferase increased [Unknown]
  - Blood alkaline phosphatase increased [Unknown]
  - Constipation [Unknown]
  - Stomatitis [Unknown]
  - Fatigue [Unknown]
  - Palmar-plantar erythrodysaesthesia syndrome [Unknown]
  - Diarrhoea [Recovered/Resolved]
  - Dermatitis acneiform [Unknown]
  - Nausea [Unknown]
